FAERS Safety Report 25443513 (Version 1)
Quarter: 2025Q2

REPORT INFORMATION
  Report Type: Spontaneous
  Country: US (occurrence: US)
  Receive Date: 20250617
  Receipt Date: 20250617
  Transmission Date: 20250717
  Serious: Yes (Death)
  Sender: ROCHE
  Company Number: US-ROCHE-10000313806

PATIENT
  Age: 54 Year
  Sex: Female

DRUGS (1)
  1. ROZLYTREK [Suspect]
     Active Substance: ENTRECTINIB
     Indication: Lung neoplasm malignant
     Route: 048
     Dates: start: 202409

REACTIONS (1)
  - Death [Fatal]

NARRATIVE: CASE EVENT DATE: 20250505
